FAERS Safety Report 8534877-5 (Version None)
Quarter: 2012Q3

REPORT INFORMATION
  Report Type: 
  Country: None (occurrence: None)
  Receive Date: 20120724
  Receipt Date: 20120718
  Transmission Date: 20120928
  Serious: Yes (Other)
  Sender: FDA-Public Use
  Company Number: US-BAYER-2012-072662

PATIENT
  Age: 73 Year
  Sex: Male
  Weight: 82 kg

DRUGS (3)
  1. ASPIRIN [Suspect]
     Indication: BACK PAIN
     Dosage: 2 DF, QD
     Dates: start: 20120706, end: 20120717
  2. ADVAIR DISKUS 100/50 [Concomitant]
  3. MULTI-VITAMIN [Concomitant]

REACTIONS (1)
  - HAEMATOCHEZIA [None]
